FAERS Safety Report 17364825 (Version 1)
Quarter: 2020Q1

REPORT INFORMATION
  Report Type: Other
  Country: GB (occurrence: GB)
  Receive Date: 20200204
  Receipt Date: 20200204
  Transmission Date: 20200409
  Serious: Yes (Life-Threatening, Hospitalization, Other)
  Sender: FDA-Public Use
  Company Number: GB-EMCURE PHARMACEUTICALS LTD-2015-EPL-0086

PATIENT
  Age: 52 Year
  Sex: Female

DRUGS (9)
  1. ZOPICLONE [Suspect]
     Active Substance: ZOPICLONE
     Indication: INSOMNIA
     Dosage: 7 MILLIGRAM, QD
     Route: 048
     Dates: start: 20140522
  2. AMISULPRIDE [Suspect]
     Active Substance: AMISULPRIDE
     Indication: SCHIZOPHRENIA
     Dosage: 500 MILLIGRAM, QD
     Route: 048
     Dates: start: 199904
  3. LORAZEPAM. [Concomitant]
     Active Substance: LORAZEPAM
     Indication: ANXIETY
     Dosage: 2 MILLIGRAM, QD
     Route: 048
  4. CLOZARIL [Suspect]
     Active Substance: CLOZAPINE
     Indication: SCHIZOPHRENIA
     Dosage: UNK
     Route: 048
     Dates: start: 20010701, end: 20150115
  5. CLOZARIL [Suspect]
     Active Substance: CLOZAPINE
     Dosage: 650 MILLIGRAM, QD
     Route: 048
  6. VENLAFAXINE [Suspect]
     Active Substance: VENLAFAXINE HYDROCHLORIDE
     Indication: DEPRESSION
     Dosage: 150 MILLIGRAM, QD
     Route: 048
     Dates: start: 20140522
  7. LAMOTRIGINE. [Concomitant]
     Active Substance: LAMOTRIGINE
     Indication: AFFECTIVE DISORDER
     Dosage: 200 MILLIGRAM, QD
     Route: 048
  8. METFORMIN [Suspect]
     Active Substance: METFORMIN HYDROCHLORIDE
     Indication: DIABETES MELLITUS
     Dosage: 1500 MILLIGRAM, QD
     Route: 048
     Dates: start: 20140522
  9. SERTRALINE [Concomitant]
     Active Substance: SERTRALINE HYDROCHLORIDE
     Indication: DEPRESSION
     Dosage: 50 MILLIGRAM, QD
     Route: 048

REACTIONS (4)
  - Hallucination [Recovering/Resolving]
  - Type 2 diabetes mellitus [Unknown]
  - Myocardial infarction [Recovering/Resolving]
  - Overweight [Recovering/Resolving]

NARRATIVE: CASE EVENT DATE: 20150109
